FAERS Safety Report 5677423-6 (Version None)
Quarter: 2008Q1

REPORT INFORMATION
  Report Type: 
  Country: None (occurrence: None)
  Receive Date: 20080324
  Receipt Date: 20080319
  Transmission Date: 20080703
  Serious: Yes (Death)
  Sender: FDA-Public Use
  Company Number: US-BRISTOL-MYERS SQUIBB COMPANY-14027494

PATIENT
  Age: 62 Year
  Sex: Male

DRUGS (13)
  1. ERBITUX [Suspect]
     Indication: COLON CANCER METASTATIC
     Dosage: FIRST ADMINISTARTION:15-JUN-2007.IV VIA PORT
     Route: 042
     Dates: start: 20070615, end: 20071213
  2. CAMPTOSAR [Concomitant]
     Dosage: INITIAL DOSAGE:250MG DECREASED FROM 30-AUG-2007 ONWARDS
     Dates: start: 20070621
  3. PRILOSEC [Concomitant]
  4. SYNTHROID [Concomitant]
  5. LOPRESSOR [Concomitant]
  6. HYDROCHLOROTHIAZIDE [Concomitant]
  7. LOVENOX [Concomitant]
     Route: 058
  8. PLAVIX [Concomitant]
  9. ASPIRIN [Concomitant]
  10. MEGACE ES [Concomitant]
  11. TRAMADOL HCL [Concomitant]
  12. SIMVASTATIN [Concomitant]
  13. PAXIL [Concomitant]

REACTIONS (2)
  - COLON CANCER [None]
  - MALIGNANT NEOPLASM PROGRESSION [None]
